FAERS Safety Report 5929843-X (Version None)
Quarter: 2008Q3

REPORT INFORMATION
  Report Type: 
  Country: None (occurrence: None)
  Receive Date: 20080930
  Receipt Date: 20070119
  Transmission Date: 20090109
  Serious: Yes (Hospitalization)
  Sender: FDA-Public Use
  Company Number: 152065USA

PATIENT
  Age: 43 Year
  Sex: Male
  Weight: 304.3 kg

DRUGS (12)
  1. FLUDARABINE PHOSPHATE [Suspect]
     Indication: BONE MARROW CONDITIONING REGIMEN
     Dosage: (68 MG),INTRAVENOUS) (NOT OTHERWISE SPECIFIED)
     Route: 042
     Dates: start: 20061106, end: 20061106
  2. ALEMTUZUMAB [Suspect]
     Indication: BONE MARROW CONDITIONING REGIMEN
     Dosage: (20 MG),INTRAVENOUS
     Route: 042
     Dates: start: 20061105, end: 20061106
  3. CIPROFLOXACIN [Concomitant]
  4. CEFALEXIN [Concomitant]
  5. VALACYCLOVIR [Concomitant]
  6. FLUCONAZOLE [Concomitant]
  7. DILTIAZEM HCL [Concomitant]
  8. ALLOPURINOL [Concomitant]
  9. INSULIN [Concomitant]
  10. METOPROLOL TARTRATE [Concomitant]
  11. METHYLPREDNISOLONE 16MG TAB [Concomitant]
  12. DIPHENHYDRAMINE HCL [Concomitant]

REACTIONS (2)
  - LUNG INFILTRATION [None]
  - RESPIRATORY FAILURE [None]
